FAERS Safety Report 4840277-1 (Version None)
Quarter: 2005Q4

REPORT INFORMATION
  Report Type: 
  Country: None (occurrence: None)
  Receive Date: 20051125
  Receipt Date: 20051118
  Transmission Date: 20060501
  Serious: Yes (Hospitalization)
  Sender: FDA-Public Use
  Company Number: 006079

PATIENT
  Age: 51 Year
  Sex: Female
  Weight: 54.4 kg

DRUGS (1)
  1. SEASONALE [Suspect]
     Indication: OLIGOMENORRHOEA
     Dosage: 1 TABLET, QD, ORAL
     Route: 048
     Dates: start: 20050701, end: 20050803

REACTIONS (5)
  - DEEP VEIN THROMBOSIS [None]
  - DYSPNOEA [None]
  - OEDEMA PERIPHERAL [None]
  - PULMONARY EMBOLISM [None]
  - UTERINE LEIOMYOMA [None]
